FAERS Safety Report 8872716 (Version 2)
Quarter: 2013Q2

REPORT INFORMATION
  Report Type: Report from Study
  Country: BR (occurrence: BR)
  Receive Date: 20121030
  Receipt Date: 20130531
  Transmission Date: 20140414
  Serious: Yes (Other)
  Sender: FDA-Public Use
  Company Number: BR-ROCHE-1149872

PATIENT
  Age: 56 Year
  Sex: Female
  Weight: 100 kg

DRUGS (14)
  1. ACTEMRA [Suspect]
     Indication: RHEUMATOID ARTHRITIS
     Dosage: KAST INFUSION : JAN/2013
     Route: 042
     Dates: start: 20120625
  2. PURAN T4 [Concomitant]
     Route: 065
  3. REUQUINOL [Concomitant]
     Route: 065
  4. ARAVA [Concomitant]
  5. LOSARTAN [Concomitant]
  6. METFORMIN [Concomitant]
  7. CLINDAMICINA [Concomitant]
  8. CIPROFLOXACIN [Concomitant]
  9. METHOTREXATE [Concomitant]
  10. FLANCOX [Concomitant]
     Indication: RHEUMATOID ARTHRITIS
  11. REUQUINOL [Concomitant]
     Indication: RHEUMATOID ARTHRITIS
  12. SIMVASTATIN [Concomitant]
     Indication: BLOOD CHOLESTEROL ABNORMAL
  13. SERTRALINA [Concomitant]
     Indication: BLOOD CHOLESTEROL ABNORMAL
  14. PREDNISONE [Concomitant]
     Indication: RHEUMATOID ARTHRITIS

REACTIONS (4)
  - Intervertebral disc protrusion [Not Recovered/Not Resolved]
  - Nosocomial infection [Recovered/Resolved]
  - Hepatitis C [Unknown]
  - Diabetes mellitus [Unknown]
